FAERS Safety Report 22000449 (Version 1)
Quarter: 2023Q1

REPORT INFORMATION
  Report Type: Spontaneous
  Country: US (occurrence: None)
  Receive Date: 20230215
  Receipt Date: 20230215
  Transmission Date: 20230418
  Serious: Yes (unspecified)
  Sender: FDA-Public Use
  Company Number: None

PATIENT
  Age: 78 Year
  Sex: Female
  Weight: 60.75 kg

DRUGS (11)
  1. LISINOPRIL [Suspect]
     Active Substance: LISINOPRIL
     Indication: Hypertension
     Dosage: FREQUENCY : TWICE A DAY;?
     Route: 048
     Dates: start: 20211230, end: 20230214
  2. Hydrochlorothiazide (Hydrodiuril) [Concomitant]
  3. COREG [Concomitant]
     Active Substance: CARVEDILOL
  4. Ondansetron-ODT (Zofran-ODT) [Concomitant]
  5. DELTASONE [Concomitant]
     Active Substance: PREDNISONE
  6. ECOTRIN [Concomitant]
     Active Substance: ASPIRIN
  7. Loratadine (Claritin) [Concomitant]
  8. ANTIVERT [Concomitant]
     Active Substance: MECLIZINE HYDROCHLORIDE
  9. VITAMIN D3 [Concomitant]
     Active Substance: CHOLECALCIFEROL
  10. VITAMIN B12 [Concomitant]
     Active Substance: CYANOCOBALAMIN
  11. MAGNESIUM [Concomitant]
     Active Substance: MAGNESIUM

REACTIONS (1)
  - Angioedema [None]

NARRATIVE: CASE EVENT DATE: 20230214
